FAERS Safety Report 4962871-X (Version None)
Quarter: 2006Q2

REPORT INFORMATION
  Report Type: 
  Country: None (occurrence: None)
  Receive Date: 20060403
  Receipt Date: 20060403
  Transmission Date: 20061013
  Serious: Yes (Hospitalization, Disabling, Congenital Anomaly)
  Sender: FDA-Public Use
  Company Number: None

PATIENT
  Age: 11 Month
  Sex: Female
  Weight: 10.4327 kg

DRUGS (1)
  1. LOVENOX [Suspect]
     Indication: FACTOR V LEIDEN MUTATION
     Dates: start: 20040801, end: 20051001

REACTIONS (3)
  - DRUG EXPOSURE DURING PREGNANCY [None]
  - HYPERTONIA [None]
  - SENSORY DISTURBANCE [None]
